FAERS Safety Report 8082183-8 (Version None)
Quarter: 2012Q1

REPORT INFORMATION
  Report Type: 
  Country: None (occurrence: None)
  Receive Date: 20120127
  Receipt Date: 20110127
  Transmission Date: 20120608
  Serious: No
  Sender: FDA-Public Use
  Company Number: US-ABBOTT-11P-163-0701931-00

PATIENT
  Sex: Female

DRUGS (14)
  1. VITAMIN B COMPLEX CAP [Concomitant]
     Indication: VITAMIN SUPPLEMENTATION
  2. ACETAMINOPHEN [Concomitant]
     Indication: PAIN
  3. FISH OIL [Concomitant]
     Indication: SUPPLEMENTATION THERAPY
  4. MULTI-VITAMIN [Concomitant]
     Indication: VITAMIN SUPPLEMENTATION
  5. RELAFEN [Concomitant]
     Indication: RHEUMATOID ARTHRITIS
  6. NORFLEX [Concomitant]
     Indication: RHEUMATOID ARTHRITIS
  7. METHOTREXATE [Suspect]
     Dosage: 4 PILLS EACH WEEK
  8. PANLOR [Concomitant]
     Indication: RHEUMATOID ARTHRITIS
  9. HUMIRA [Suspect]
     Indication: RHEUMATOID ARTHRITIS
     Dates: start: 20110103
  10. FOLIC ACID [Concomitant]
     Indication: VITAMIN SUPPLEMENTATION
  11. LORAZEPAM [Concomitant]
     Indication: ANXIETY
  12. METHOTREXATE [Suspect]
     Indication: RHEUMATOID ARTHRITIS
     Dosage: 6 PILLS EACH WEEK
     Dates: end: 20110126
  13. NEXIUM [Concomitant]
     Indication: GASTROOESOPHAGEAL REFLUX DISEASE
  14. CLARITIN [Concomitant]
     Indication: HYPERSENSITIVITY

REACTIONS (6)
  - ALOPECIA [None]
  - WHITE BLOOD CELL COUNT DECREASED [None]
  - AMNESIA [None]
  - VISION BLURRED [None]
  - HYPOAESTHESIA [None]
  - PARAESTHESIA [None]
